FAERS Safety Report 19677826 (Version 20)
Quarter: 2023Q1

REPORT INFORMATION
  Report Type: Spontaneous
  Country: CA (occurrence: CA)
  Receive Date: 20210810
  Receipt Date: 20230316
  Transmission Date: 20230417
  Serious: Yes (Hospitalization)
  Sender: FDA-Public Use
  Company Number: CA-CELLTRION INC.-2021CA008384

PATIENT

DRUGS (26)
  1. INFLECTRA [Suspect]
     Active Substance: INFLIXIMAB-DYYB
     Indication: Crohn^s disease
     Dosage: 200 MG, EVERY 8 WEEKS
     Route: 042
  2. INFLECTRA [Suspect]
     Active Substance: INFLIXIMAB-DYYB
     Dosage: 300 MG, EVERY 7WEEKS
     Route: 042
     Dates: start: 20210616, end: 20210616
  3. INFLECTRA [Suspect]
     Active Substance: INFLIXIMAB-DYYB
     Dosage: 400 MG, EVERY 4 WEEKS
     Route: 042
     Dates: start: 20210812, end: 20210812
  4. INFLECTRA [Suspect]
     Active Substance: INFLIXIMAB-DYYB
     Dosage: 400 MG, EVERY 4 WEEKS
     Route: 042
     Dates: start: 20210908
  5. INFLECTRA [Suspect]
     Active Substance: INFLIXIMAB-DYYB
     Dosage: 450 MG, EVERY 4 WEEKS
     Route: 042
     Dates: start: 20210908, end: 20220614
  6. INFLECTRA [Suspect]
     Active Substance: INFLIXIMAB-DYYB
     Dosage: 400 MG, EVERY 4 WEEKS
     Route: 042
     Dates: start: 20211102
  7. INFLECTRA [Suspect]
     Active Substance: INFLIXIMAB-DYYB
     Dosage: 400 MG, EVERY 4 WEEKS
     Route: 042
     Dates: start: 20211130
  8. INFLECTRA [Suspect]
     Active Substance: INFLIXIMAB-DYYB
     Dosage: 450 MG, EVERY 4 WEEKS
     Route: 042
     Dates: start: 20220222
  9. INFLECTRA [Suspect]
     Active Substance: INFLIXIMAB-DYYB
     Dosage: 450 MG, EVERY 4 WEEKS
     Route: 042
     Dates: start: 20220323
  10. INFLECTRA [Suspect]
     Active Substance: INFLIXIMAB-DYYB
     Dosage: 450 MG, EVERY 4 WEEKS
     Route: 042
     Dates: start: 20220419
  11. INFLECTRA [Suspect]
     Active Substance: INFLIXIMAB-DYYB
     Dosage: 450 MG, EVERY 4 WEEKS
     Route: 042
     Dates: start: 20220517
  12. INFLECTRA [Suspect]
     Active Substance: INFLIXIMAB-DYYB
     Dosage: 450 MG, EVERY 4 WEEKS
     Route: 042
     Dates: start: 20220614
  13. INFLECTRA [Suspect]
     Active Substance: INFLIXIMAB-DYYB
     Dosage: 450 MG, EVERY 5 WEEKS
     Route: 042
  14. INFLECTRA [Suspect]
     Active Substance: INFLIXIMAB-DYYB
     Dosage: 450 MG, EVERY 5 WEEKS
     Route: 042
     Dates: start: 20220712
  15. INFLECTRA [Suspect]
     Active Substance: INFLIXIMAB-DYYB
     Dosage: 450 MG, EVERY 5 WEEKS
     Route: 042
     Dates: start: 20220809
  16. INFLECTRA [Suspect]
     Active Substance: INFLIXIMAB-DYYB
     Dosage: 450 MG, EVERY 5 WEEKS
     Route: 042
     Dates: start: 20220912
  17. INFLECTRA [Suspect]
     Active Substance: INFLIXIMAB-DYYB
     Dosage: 450 MG, EVERY 5 WEEKS
     Route: 042
     Dates: start: 20221018
  18. INFLECTRA [Suspect]
     Active Substance: INFLIXIMAB-DYYB
     Dosage: 450 MG, EVERY 5 WEEKS
     Route: 042
     Dates: start: 20221121
  19. INFLECTRA [Suspect]
     Active Substance: INFLIXIMAB-DYYB
     Dosage: 450 MG, EVERY 5 WEEKS
     Route: 042
     Dates: start: 20221230
  20. INFLECTRA [Suspect]
     Active Substance: INFLIXIMAB-DYYB
     Dosage: 450 MG, EVERY 5 WEEKS
     Route: 042
     Dates: start: 20230201
  21. INFLECTRA [Suspect]
     Active Substance: INFLIXIMAB-DYYB
     Dosage: 450 MG, EVERY 5 WEEKS
     Route: 042
     Dates: start: 20230308
  22. IRON [Concomitant]
     Active Substance: IRON
     Dosage: 1 DF, DOSAGE NOT AVAILABLE
     Route: 065
  23. SERTRALINE [Concomitant]
     Active Substance: SERTRALINE HYDROCHLORIDE
     Indication: Anxiety
     Dosage: 50 MG, 1X/DAY (AT BEDTIME)
     Route: 048
  24. CHOLECALCIFEROL [Concomitant]
     Active Substance: CHOLECALCIFEROL
     Dosage: 1 DF DOSAGE NOT AVAILABLE
     Route: 065
  25. VYVANSE [Concomitant]
     Active Substance: LISDEXAMFETAMINE DIMESYLATE
     Dosage: 1 DF, DOSAGE NOT AVAILABLE
     Route: 065
  26. RUPATADINE FUMARATE [Concomitant]
     Active Substance: RUPATADINE FUMARATE
     Dosage: 1 DF (TABLET), 2X/DAY
     Dates: start: 20230114

REACTIONS (18)
  - Condition aggravated [Recovering/Resolving]
  - COVID-19 [Recovered/Resolved]
  - Weight increased [Unknown]
  - Arthralgia [Unknown]
  - Oedema peripheral [Not Recovered/Not Resolved]
  - Lip oedema [Not Recovered/Not Resolved]
  - Swelling [Not Recovered/Not Resolved]
  - Nasopharyngitis [Recovered/Resolved]
  - Oedema [Unknown]
  - Aphthous ulcer [Unknown]
  - Loss of personal independence in daily activities [Not Recovered/Not Resolved]
  - Anal fissure [Recovered/Resolved]
  - Heart rate increased [Not Recovered/Not Resolved]
  - Off label use [Unknown]
  - Off label use [Unknown]
  - Off label use [Unknown]
  - Intentional product use issue [Unknown]
  - Inappropriate schedule of product administration [Unknown]

NARRATIVE: CASE EVENT DATE: 20210701
